FAERS Safety Report 8563925-1 (Version None)
Quarter: 2012Q3

REPORT INFORMATION
  Report Type: 
  Country: None (occurrence: None)
  Receive Date: 20120713
  Receipt Date: 20120702
  Transmission Date: 20120928
  Serious: Yes (Other)
  Sender: FDA-Public Use
  Company Number: 2012PROUSA01598

PATIENT
  Age: 78 Year
  Sex: Male
  Weight: 79.8 kg

DRUGS (10)
  1. PROTONIX [Concomitant]
  2. SYNTHROID [Concomitant]
  3. FERROUS SULFATE TAB [Concomitant]
  4. XGEVA [Concomitant]
  5. TOPROL-XL [Concomitant]
  6. VITAMIN E [Concomitant]
  7. MULTIVITAMINS (ASCORBIC ACID, ERGOCALCIFEROL, FOLIC ACID, NICOTINAMIDE [Concomitant]
  8. CALCIUM +D (CALCIUM CARBONATE, COLECALCIFEROL) [Concomitant]
  9. PROVENGE [Suspect]
     Indication: PROSTATE CANCER METASTATIC
     Dosage: 250 ML, SINGLE, INTRAVENOUS
     Route: 042
     Dates: start: 20120628, end: 20120628
  10. LIPITOR [Concomitant]

REACTIONS (7)
  - BACK PAIN [None]
  - PARAESTHESIA [None]
  - BRADYCARDIA [None]
  - MUSCULOSKELETAL PAIN [None]
  - DIZZINESS [None]
  - HYPERHIDROSIS [None]
  - BLOOD PRESSURE INCREASED [None]
